FAERS Safety Report 10189520 (Version 1)
Quarter: 2014Q2

REPORT INFORMATION
  Report Type: Spontaneous
  Country: US (occurrence: US)
  Receive Date: 20140522
  Receipt Date: 20140522
  Transmission Date: 20141212
  Serious: Yes (Hospitalization, Other)
  Sender: FDA-Public Use
  Company Number: PHHY2014US062156

PATIENT
  Age: 52 Year
  Sex: Female

DRUGS (10)
  1. CLOZAPINE [Suspect]
     Dosage: 450 MG, (100MG EVERY MORNING AND 350MG AT BEDTIME)
  2. AZITHROMYCIN [Interacting]
     Dosage: 500 MG, DAILY
     Route: 042
  3. NALOXONE [Suspect]
  4. FLUMAZENIL [Suspect]
  5. OXYBUTYNIN [Concomitant]
     Dosage: 20 MG, UNK
  6. ESCITALOPRAM [Concomitant]
     Dosage: 40 MG, UNK
  7. ASPIRIN [Concomitant]
     Dosage: 81 MG, UNK
  8. ALBUTEROL + IPRATROPIUM [Concomitant]
  9. FLUTICASONE W/SALMETEROL [Concomitant]
  10. ALBUTEROL [Concomitant]

REACTIONS (8)
  - Toxicity to various agents [Recovered/Resolved]
  - Depressed level of consciousness [Unknown]
  - Hypotension [Unknown]
  - Myoclonus [Unknown]
  - Salivary hypersecretion [Unknown]
  - Drug level increased [Recovered/Resolved]
  - Drug interaction [Unknown]
  - Drug ineffective [Unknown]
